FAERS Safety Report 18136123 (Version 3)
Quarter: 2021Q2

REPORT INFORMATION
  Report Type: Spontaneous
  Country: US (occurrence: US)
  Receive Date: 20200811
  Receipt Date: 20210629
  Transmission Date: 20210717
  Serious: No
  Sender: FDA-Public Use
  Company Number: US-BIOGEN-2020BI00909718

PATIENT
  Age: 53 Year
  Sex: Female

DRUGS (4)
  1. TYSABRI [Suspect]
     Active Substance: NATALIZUMAB
     Indication: MULTIPLE SCLEROSIS
     Route: 042
     Dates: start: 20200625
  2. TYSABRI [Suspect]
     Active Substance: NATALIZUMAB
     Dosage: INFUSIONS EVERY EIGHT TO TEN WEEKS
     Route: 065
  3. BENADRYL [Concomitant]
     Active Substance: DIPHENHYDRAMINE HYDROCHLORIDE
     Indication: INFLUENZA LIKE ILLNESS
     Route: 065
  4. TYLENOL [Concomitant]
     Active Substance: ACETAMINOPHEN
     Indication: INFLUENZA LIKE ILLNESS
     Route: 065

REACTIONS (8)
  - Product dose omission issue [Unknown]
  - Influenza like illness [Not Recovered/Not Resolved]
  - Sinusitis [Recovered/Resolved]
  - Loss of consciousness [Not Recovered/Not Resolved]
  - Tooth infection [Unknown]
  - Prescribed underdose [Unknown]
  - Abdominal pain upper [Not Recovered/Not Resolved]
  - Nausea [Not Recovered/Not Resolved]

NARRATIVE: CASE EVENT DATE: 20200715
